FAERS Safety Report 9106179 (Version 1)
Quarter: 2013Q1

REPORT INFORMATION
  Report Type: Spontaneous
  Country: JP (occurrence: JP)
  Receive Date: 20130221
  Receipt Date: 20130221
  Transmission Date: 20140127
  Serious: Yes (Other)
  Sender: FDA-Public Use
  Company Number: JP-WATSON-2013-02532

PATIENT
  Age: 74 Year
  Sex: Male

DRUGS (2)
  1. CARBOPLATIN [Suspect]
     Indication: SMALL CELL LUNG CANCER
     Dosage: UNK, UNKNOWN
     Route: 065
  2. ETOPOSIDE [Suspect]
     Indication: SMALL CELL LUNG CANCER
     Dosage: UNK, UNKNOWN
     Route: 065

REACTIONS (7)
  - Bone marrow failure [Not Recovered/Not Resolved]
  - Febrile neutropenia [Recovered/Resolved]
  - Zygomycosis [Recovered/Resolved]
  - Cough [None]
  - Dyspnoea [None]
  - Acute respiratory failure [None]
  - Lymphangiosis carcinomatosa [None]
